FAERS Safety Report 7501145-X (Version None)
Quarter: 2011Q2

REPORT INFORMATION
  Report Type: 
  Country: None (occurrence: None)
  Receive Date: 20110524
  Receipt Date: 20100528
  Transmission Date: 20111010
  Serious: No
  Sender: FDA-Public Use
  Company Number: US-NOVEN-ALL1-2010-03124

PATIENT

DRUGS (4)
  1. DAYTRANA [Suspect]
     Dosage: UNK MG, ADMINISTERED HALF OF A CUT 10 MG PATCH ON WEEKENDS
     Route: 062
     Dates: start: 20100504
  2. DAYTRANA [Suspect]
     Dosage: 15 MG, 1X/DAY:QD (WEEKDAYS)
     Route: 062
     Dates: start: 20090101, end: 20100503
  3. DAYTRANA [Suspect]
     Dosage: UNK MG, ADMINISTERED HALF OF A CUT 15 MG PATCH ON WEEKENDS
     Route: 062
     Dates: start: 20090101, end: 20100503
  4. DAYTRANA [Suspect]
     Dosage: 10 MG, 1X/DAY:QD (WEEKDAYS)
     Route: 062
     Dates: start: 20100504

REACTIONS (6)
  - VOMITING [None]
  - WRONG TECHNIQUE IN DRUG USAGE PROCESS [None]
  - PRODUCT QUALITY ISSUE [None]
  - INCORRECT STORAGE OF DRUG [None]
  - HEADACHE [None]
  - MOOD ALTERED [None]
